FAERS Safety Report 8346391-0 (Version None)
Quarter: 2012Q2

REPORT INFORMATION
  Report Type: 
  Country: None (occurrence: None)
  Receive Date: 20120507
  Receipt Date: 20120507
  Transmission Date: 20120825
  Serious: Yes (Hospitalization)
  Sender: FDA-Public Use
  Company Number: None

PATIENT
  Age: 76 Year
  Sex: Female
  Weight: 77.3 kg

DRUGS (1)
  1. XALKORI 250MG PFIZER [Suspect]
     Indication: LUNG NEOPLASM MALIGNANT
     Dosage: 250MG BID PO
     Route: 048
     Dates: start: 20120401

REACTIONS (5)
  - ABDOMINAL PAIN [None]
  - DIARRHOEA [None]
  - GASTROOESOPHAGEAL REFLUX DISEASE [None]
  - VOMITING [None]
  - NAUSEA [None]
